FAERS Safety Report 24697611 (Version 1)
Quarter: 2024Q4

REPORT INFORMATION
  Report Type: Spontaneous
  Country: FR (occurrence: FR)
  Receive Date: 20241204
  Receipt Date: 20241204
  Transmission Date: 20250115
  Serious: Yes (Death, Hospitalization, Other)
  Sender: GILEAD
  Company Number: None

PATIENT
  Age: 59 Year
  Sex: Male
  Weight: 81 kg

DRUGS (1)
  1. TECARTUS [Suspect]
     Active Substance: BREXUCABTAGENE AUTOLEUCEL
     Indication: Mantle cell lymphoma recurrent
     Dosage: 1 DOSAGE FORM, ONCE
     Route: 042
     Dates: start: 20241105, end: 20241105

REACTIONS (4)
  - Multiple organ dysfunction syndrome [Fatal]
  - Cytokine release syndrome [Recovered/Resolved]
  - Pleural effusion [Recovered/Resolved with Sequelae]
  - Immune effector cell-associated neurotoxicity syndrome [Recovered/Resolved with Sequelae]

NARRATIVE: CASE EVENT DATE: 20241109
